FAERS Safety Report 22654704 (Version 1)
Quarter: 2023Q2

REPORT INFORMATION
  Report Type: Other
  Country: US (occurrence: None)
  Receive Date: 20230629
  Receipt Date: 20230629
  Transmission Date: 20230722
  Serious: Yes (Death, Other)
  Sender: FDA-Public Use
  Company Number: US-ROCHE-3355497

PATIENT
  Age: 59 Year
  Sex: Male

DRUGS (1)
  1. OCREVUS [Suspect]
     Active Substance: OCRELIZUMAB
     Indication: Multiple sclerosis
     Dosage: ONGOING: NO
     Route: 065
     Dates: start: 20221228, end: 20221228

REACTIONS (3)
  - Osteomyelitis [Fatal]
  - Respiratory failure [Recovered/Resolved]
  - Abdominal abscess [Fatal]

NARRATIVE: CASE EVENT DATE: 20230201
